FAERS Safety Report 6112658-X (Version None)
Quarter: 2009Q1

REPORT INFORMATION
  Report Type: 
  Country: None (occurrence: None)
  Receive Date: 20090310
  Receipt Date: 20090224
  Transmission Date: 20090719
  Serious: Yes (Other)
  Sender: FDA-Public Use
  Company Number: GXKR2009GB02368

PATIENT
  Age: 69 Year
  Sex: Female

DRUGS (6)
  1. WARFARIN SODIUM [Suspect]
  2. ILEX PARAGUARIENSIS (ILEX PARAGUARIENSIS) [Suspect]
     Indication: MUSCULOSKELETAL PAIN
     Dosage: TOPICAL
     Route: 061
  3. CO-DYDRAMOL (DIHYDROCODEINE BITARTRATE, PARACETAMOL) [Concomitant]
  4. DIHYDROCODEINE COMPOUND [Concomitant]
  5. LEVOTHYROIXNE (LEVOTHYROXINE) [Concomitant]
  6. RAMIPRIL [Concomitant]

REACTIONS (2)
  - DRUG INTERACTION [None]
  - INTERNATIONAL NORMALISED RATIO ABNORMAL [None]
